FAERS Safety Report 5228707-7 (Version None)
Quarter: 2007Q1

REPORT INFORMATION
  Report Type: 
  Country: None (occurrence: None)
  Receive Date: 20070205
  Receipt Date: 20070123
  Transmission Date: 20070707
  Serious: Yes (Other)
  Sender: FDA-Public Use
  Company Number: PHBS2005CH01206

PATIENT
  Age: 70 Year
  Sex: Female

DRUGS (8)
  1. ZOMETA [Suspect]
     Indication: METASTASES TO BONE
     Dosage: 4 MG EVERY 3 - 4 WEEKS
     Route: 042
     Dates: start: 20030723, end: 20050113
  2. NOVANTRONE [Suspect]
     Route: 042
     Dates: start: 20040617, end: 20040909
  3. XELODA [Suspect]
     Route: 048
     Dates: start: 20040909
  4. NAVELBINE [Suspect]
     Route: 042
     Dates: start: 20040415, end: 20040603
  5. TAMOXIFEN CITRATE [Concomitant]
     Route: 048
     Dates: start: 20030404, end: 20030917
  6. ARIMIDEX [Concomitant]
     Route: 048
     Dates: start: 20030919, end: 20040401
  7. CHEMOTHERAPEUTICS,OTHER [Concomitant]
     Route: 065
  8. CORTICOSTEROIDS [Concomitant]
     Route: 065

REACTIONS (9)
  - ABSCESS SOFT TISSUE [None]
  - BONE DISORDER [None]
  - BONE LESION [None]
  - DENTAL TREATMENT [None]
  - HYPOAESTHESIA [None]
  - INCISIONAL DRAINAGE [None]
  - OSTEONECROSIS [None]
  - PAIN IN JAW [None]
  - TOOTH EXTRACTION [None]
